FAERS Safety Report 9161583 (Version 2)
Quarter: 2013Q2

REPORT INFORMATION
  Report Type: Other
  Country: FR (occurrence: FR)
  Receive Date: 20121221
  Receipt Date: 20130429
  Transmission Date: 20140414
  Serious: Yes (Other)
  Sender: FDA-Public Use
  Company Number: FR-RB-047867-12

PATIENT
  Sex: Female

DRUGS (3)
  1. BUPRENORPHINE [Suspect]
     Indication: DRUG DEPENDENCE
     Dosage: STOPPED TAKING IN 12TH WEEK OF PREGNANCY
  2. CANNABIS [Suspect]
     Indication: PRODUCT USED FOR UNKNOWN INDICATION
     Dosage: DRUG DETAILS UNKNOWN
     Route: 065
  3. ASPIRIN [Concomitant]
     Indication: ANTIPHOSPHOLIPID SYNDROME
     Route: 065

REACTIONS (2)
  - Exposure during pregnancy [Recovered/Resolved]
  - Antiphospholipid syndrome [Unknown]
